FAERS Safety Report 17058744 (Version 2)
Quarter: 2020Q1

REPORT INFORMATION
  Report Type: Spontaneous
  Country: US (occurrence: US)
  Receive Date: 20191121
  Receipt Date: 20200211
  Transmission Date: 20200409
  Serious: No
  Sender: FDA-Public Use
  Company Number: US-BEH-2019109661

PATIENT
  Sex: Female

DRUGS (2)
  1. HAEGARDA [Suspect]
     Active Substance: HUMAN C1-ESTERASE INHIBITOR
     Indication: PROPHYLAXIS
     Dosage: 3900 INTERNATIONAL UNIT, BIW (Q3D)
     Route: 058
     Dates: start: 2018
  2. HAEGARDA [Suspect]
     Active Substance: HUMAN C1-ESTERASE INHIBITOR
     Indication: HEREDITARY ANGIOEDEMA
     Dosage: 3900 INTERNATIONAL UNIT, BIW
     Route: 058
     Dates: start: 20171109

REACTIONS (3)
  - Treatment noncompliance [Unknown]
  - Product distribution issue [Unknown]
  - No adverse event [Unknown]
